FAERS Safety Report 6811086-9 (Version None)
Quarter: 2010Q2

REPORT INFORMATION
  Report Type: 
  Country: None (occurrence: None)
  Receive Date: 20100630
  Receipt Date: 20090403
  Transmission Date: 20101027
  Serious: No
  Sender: FDA-Public Use
  Company Number: US-PFIZER INC-2009197483

PATIENT
  Sex: Female
  Weight: 65.317 kg

DRUGS (10)
  1. NICOTROL [Suspect]
     Indication: SMOKING CESSATION THERAPY
     Dates: start: 20090402
  2. CHANTIX [Suspect]
     Indication: SMOKING CESSATION THERAPY
     Dosage: 0.5 MG, 1X/DAY
     Dates: start: 20081101, end: 20090101
  3. HYDROCHLOROTHIAZIDE [Concomitant]
     Indication: HYPERTENSION
     Dosage: UNK
  4. MONTELUKAST [Concomitant]
     Dosage: UNK
  5. ADVAIR DISKUS 100/50 [Concomitant]
     Dosage: UNK
  6. TIOTROPIUM [Concomitant]
     Dosage: UNK
  7. METFORMIN [Concomitant]
     Dosage: UNK
  8. ACTOS [Concomitant]
     Dosage: UNK
  9. OXYCONTIN [Concomitant]
     Indication: PAIN
     Dosage: UNK
  10. PERCOCET [Concomitant]
     Dosage: UNK

REACTIONS (3)
  - NAUSEA [None]
  - PRODUCTIVE COUGH [None]
  - THROAT IRRITATION [None]
